FAERS Safety Report 24053923 (Version 1)
Quarter: 2024Q3

REPORT INFORMATION
  Report Type: Spontaneous
  Country: GB (occurrence: GB)
  Receive Date: 20240705
  Receipt Date: 20240705
  Transmission Date: 20241017
  Serious: Yes (Other)
  Sender: ALKEM
  Company Number: None

PATIENT
  Age: 67 Year
  Sex: Male
  Weight: 122 kg

DRUGS (16)
  1. SOLIFENACIN [Suspect]
     Active Substance: SOLIFENACIN
     Indication: Product used for unknown indication
     Dosage: 5 MILLIGRAM, QD (ONE DAY, TABLET)
     Route: 065
     Dates: start: 20230510
  2. AMLODIPINE [Concomitant]
     Active Substance: AMLODIPINE BESYLATE
     Indication: Product used for unknown indication
     Dosage: 1 DOSAGE FORM, QD (ONE DAY)
     Route: 065
     Dates: start: 20221108
  3. ASPIRIN [Concomitant]
     Active Substance: ASPIRIN
     Indication: Product used for unknown indication
     Dosage: 1 DOSAGE FORM, QD (ONE DAY, IN THE MORNING)
     Route: 065
     Dates: start: 20190531
  4. ATORVASTATIN [Concomitant]
     Active Substance: ATORVASTATIN
     Indication: Product used for unknown indication
     Dosage: 1 DOSAGE FORM, QD (ONE DAY)
     Route: 065
     Dates: start: 20190531
  5. BYDUREON [Concomitant]
     Active Substance: EXENATIDE
     Indication: Product used for unknown indication
     Dosage: 2 MILLIGRAM, ONCE WEEKLY (WHILST OZEMPIC UNAVAILABLE)
     Route: 065
     Dates: start: 20230725
  6. COCODAMOL [Concomitant]
     Active Substance: ACETAMINOPHEN\CODEINE PHOSPHATE
     Indication: Product used for unknown indication
     Dosage: UNK, QD (4, ONE DAY, TAKE 1 OR 2)
     Route: 065
     Dates: start: 20221108
  7. DAPAGLIFLOZIN [Concomitant]
     Active Substance: DAPAGLIFLOZIN
     Indication: Product used for unknown indication
     Dosage: 1 DOSAGE FORM, QD (ONE DAY)
     Route: 065
     Dates: start: 20211123
  8. GLICLAZIDE [Concomitant]
     Active Substance: GLICLAZIDE
     Indication: Product used for unknown indication
     Dosage: 1 DOSAGE FORM, QD (ONE DAY, WITH FOOD)
     Route: 065
     Dates: start: 20190531
  9. NITROGLYCERIN [Concomitant]
     Active Substance: NITROGLYCERIN
     Indication: Product used for unknown indication
     Dosage: UNK, PRN (1 OR 2 PUFFS, AS NECESSARY)
     Route: 065
     Dates: start: 20190531
  10. LIPITOR [Concomitant]
     Active Substance: ATORVASTATIN CALCIUM
     Indication: Product used for unknown indication
     Dosage: 1 DOSAGE FORM, QD (ONE DAY)
     Route: 065
     Dates: start: 20230725
  11. LISINOPRIL [Concomitant]
     Active Substance: LISINOPRIL
     Indication: Product used for unknown indication
     Dosage: 1 DOSAGE FORM, QD (ONE DAY)
     Route: 065
     Dates: start: 20190531
  12. POLYETHYLENE GLYCOLS [Concomitant]
     Active Substance: POLYETHYLENE GLYCOLS
     Indication: Product used for unknown indication
     Dosage: 1 DOSAGE FORM, QD (ONE DAY, IT CAN BE INCREASED TO ONE THRE...)
     Route: 065
     Dates: start: 20221108
  13. METFORMIN [Concomitant]
     Active Substance: METFORMIN HYDROCHLORIDE
     Indication: Product used for unknown indication
     Dosage: 4 DOSAGE FORM, QD (ONE DAY)
     Route: 065
     Dates: start: 20190531
  14. METOPROLOL TARTRATE [Concomitant]
     Active Substance: METOPROLOL TARTRATE
     Indication: Product used for unknown indication
     Dosage: 2 DOSAGE FORM, QD (ONE DAY)
     Route: 065
     Dates: start: 20190531
  15. OZEMPIC [Concomitant]
     Active Substance: SEMAGLUTIDE
     Indication: Product used for unknown indication
     Dosage: 1 MILLIGRAM, ONCE WEEKLY
     Route: 065
     Dates: start: 20220331
  16. SILDENAFIL [Concomitant]
     Active Substance: SILDENAFIL
     Indication: Product used for unknown indication
     Dosage: 1 DOSAGE FORM (AS DRECTED)
     Route: 065
     Dates: start: 20190531

REACTIONS (1)
  - Oedema peripheral [Recovering/Resolving]
